FAERS Safety Report 4273358-4 (Version None)
Quarter: 2004Q1

REPORT INFORMATION
  Report Type: 
  Country: None (occurrence: None)
  Receive Date: 20040115
  Receipt Date: 20040115
  Transmission Date: 20041129
  Serious: Yes (Life-Threatening, Hospitalization)
  Sender: FDA-Public Use
  Company Number: None

PATIENT
  Age: 60 Year
  Sex: Male
  Weight: 99 kg

DRUGS (6)
  1. CIALIS [Suspect]
     Indication: SEXUAL DYSFUNCTION
     Dosage: ONE TABLET PO 20 MG -1ST DOSE EVER TAKEN
     Route: 048
     Dates: start: 20040111
  2. MODURETIC 5-50 [Concomitant]
  3. COZAAR [Concomitant]
  4. KCL TAB [Concomitant]
  5. LIPITOR [Concomitant]
  6. GLUCOSAMINE-CHONDROITIN [Concomitant]

REACTIONS (6)
  - BUNDLE BRANCH BLOCK LEFT [None]
  - DYSPNOEA [None]
  - EJECTION FRACTION DECREASED [None]
  - HYPERTENSION [None]
  - RESPIRATORY DISTRESS [None]
  - VENTRICULAR DYSFUNCTION [None]
